FAERS Safety Report 17121471 (Version 2)
Quarter: 2020Q1

REPORT INFORMATION
  Report Type: Spontaneous
  Country: AT (occurrence: AT)
  Receive Date: 20191206
  Receipt Date: 20200331
  Transmission Date: 20200409
  Serious: Yes (Other)
  Sender: FDA-Public Use
  Company Number: AT-ASTRAZENECA-2019SF70820

PATIENT
  Age: 44 Year
  Sex: Female

DRUGS (10)
  1. SUMATRIPTAN. [Suspect]
     Active Substance: SUMATRIPTAN
     Indication: MIGRAINE
     Route: 065
  2. PARACETAMOL [Suspect]
     Active Substance: ACETAMINOPHEN
     Indication: MIGRAINE
     Dosage: 200.0MG UNKNOWN
     Route: 065
  3. FROVATRIPTAN. [Suspect]
     Active Substance: FROVATRIPTAN
     Indication: MIGRAINE
     Dosage: 2.5 MG, UNKNOWN (10 TIMES PER MONTH)
     Route: 065
  4. IBUPROFEN. [Suspect]
     Active Substance: IBUPROFEN
     Indication: MIGRAINE
     Dosage: UNK
     Route: 065
  5. ELETRIPTAN. [Suspect]
     Active Substance: ELETRIPTAN
     Indication: MIGRAINE
     Dosage: 40 MG, UNKNOWN (12 TIMES PER MONTH APPROX)
     Route: 065
  6. ZOLMITRIPTAN. [Suspect]
     Active Substance: ZOLMITRIPTAN
     Indication: MIGRAINE
     Route: 065
  7. ACETYLSALICYLIC ACID [Suspect]
     Active Substance: ASPIRIN
     Indication: MIGRAINE
     Dosage: 250.0MG UNKNOWN
     Route: 065
  8. MEFENAMIC ACID. [Suspect]
     Active Substance: MEFENAMIC ACID
     Indication: MIGRAINE
     Route: 065
  9. DICLOFENAC [Suspect]
     Active Substance: DICLOFENAC
     Indication: MIGRAINE
     Dosage: UNK
     Route: 065
  10. CAFFEINE. [Suspect]
     Active Substance: CAFFEINE
     Indication: MIGRAINE
     Dosage: 50 MG, UNKNOWN (15 DAYS PER MONTH)
     Route: 065

REACTIONS (2)
  - Gastric ulcer [Recovered/Resolved]
  - Therapeutic product effect incomplete [Unknown]
